FAERS Safety Report 8234761-0 (Version None)
Quarter: 2012Q1

REPORT INFORMATION
  Report Type: 
  Country: None (occurrence: None)
  Receive Date: 20120321
  Receipt Date: 20120308
  Transmission Date: 20120608
  Serious: Yes (Other)
  Sender: FDA-Public Use
  Company Number: 2012SP013395

PATIENT

DRUGS (1)
  1. ORGARAN [Suspect]
     Indication: PRODUCT USED FOR UNKNOWN INDICATION
     Dosage: IV
     Route: 042

REACTIONS (5)
  - RENAL FAILURE [None]
  - INCORRECT DOSE ADMINISTERED [None]
  - CATHETER SITE HAEMORRHAGE [None]
  - MOUTH HAEMORRHAGE [None]
  - METABOLIC DISORDER [None]
